FAERS Safety Report 9328219 (Version 1)
Quarter: 2013Q2

REPORT INFORMATION
  Report Type: Spontaneous
  Country: US (occurrence: US)
  Receive Date: 20130604
  Receipt Date: 20130604
  Transmission Date: 20140414
  Serious: No
  Sender: FDA-Public Use
  Company Number: US-SANOFI-AVENTIS-2012SA038748

PATIENT
  Sex: 0

DRUGS (2)
  1. LANTUS [Suspect]
     Route: 058
     Dates: start: 20120524
  2. STARLIX [Suspect]
     Route: 065
     Dates: start: 20120524

REACTIONS (9)
  - Abdominal discomfort [Not Recovered/Not Resolved]
  - Abdominal distension [Not Recovered/Not Resolved]
  - Somnolence [Recovered/Resolved]
  - Nausea [Not Recovered/Not Resolved]
  - Dizziness [Unknown]
  - Asthenia [Unknown]
  - Palpitations [Unknown]
  - Dysgeusia [Not Recovered/Not Resolved]
  - Blood glucose increased [Unknown]
